FAERS Safety Report 18753646 (Version 2)
Quarter: 2021Q1

REPORT INFORMATION
  Report Type: Report from Study
  Country: US (occurrence: US)
  Receive Date: 20210118
  Receipt Date: 20210216
  Transmission Date: 20210419
  Serious: Yes (Hospitalization, Other)
  Sender: FDA-Public Use
  Company Number: US-009507513-2012USA004066

PATIENT
  Age: 66 Year
  Sex: Male

DRUGS (19)
  1. FLUOROURACIL. [Suspect]
     Active Substance: FLUOROURACIL
     Indication: SQUAMOUS CELL CARCINOMA OF HEAD AND NECK
     Dosage: 400MG, FREQUENCY REPORTED AS 96 HOURS
     Route: 042
     Dates: start: 20200803, end: 20200803
  2. LEVOTHYROXINE SODIUM. [Concomitant]
     Active Substance: LEVOTHYROXINE SODIUM
     Indication: HYPOTHYROIDISM
     Dosage: 117 MILLIGRAM, QD
  3. CARBOPLATIN. [Suspect]
     Active Substance: CARBOPLATIN
     Dosage: 80% (ROUTE OF ADMINISTRATION: PORT)
     Route: 042
     Dates: start: 20201012, end: 20201012
  4. CARBOPLATIN. [Suspect]
     Active Substance: CARBOPLATIN
     Dosage: 100 %, (ROUTE OF ADMINISTRATION: PORT)
     Route: 042
     Dates: start: 20201214, end: 20210208
  5. LIPITOR [Concomitant]
     Active Substance: ATORVASTATIN CALCIUM
     Indication: PROPHYLAXIS
     Dosage: 80 MG ONCE A DAY
  6. VITAMIN D (UNSPECIFIED) [Concomitant]
     Active Substance: VITAMIN D NOS
     Indication: VITAMIN D DECREASED
     Dosage: 2000 UNITS
  7. TYLENOL [Concomitant]
     Active Substance: ACETAMINOPHEN
     Indication: PAIN
  8. FLUOROURACIL. [Suspect]
     Active Substance: FLUOROURACIL
     Dosage: REDUCED DOSE ON A PUMP FOR 5 DAYS
     Route: 042
     Dates: start: 20201214, end: 20201218
  9. METOPROLOL. [Concomitant]
     Active Substance: METOPROLOL
     Indication: PROPHYLAXIS
     Dosage: 50 MG TWICE A DAY
  10. ASPIRIN. [Concomitant]
     Active Substance: ASPIRIN
     Indication: PRODUCT USED FOR UNKNOWN INDICATION
     Dosage: 81 MG ONCE A DAY
  11. MORPHINE [Concomitant]
     Active Substance: MORPHINE
     Indication: PAIN
     Dosage: UNK
  12. CARBOPLATIN. [Suspect]
     Active Substance: CARBOPLATIN
     Indication: SQUAMOUS CELL CARCINOMA OF HEAD AND NECK
     Dosage: AREA UNDER CURVE: 5, (ROUTE OF ADMINISTRATION: PORT)
     Route: 042
     Dates: start: 20200803, end: 20210208
  13. CARBOPLATIN. [Suspect]
     Active Substance: CARBOPLATIN
     Dosage: 50% (ROUTE OF ADMINISTRATION: PORT)
     Route: 042
     Dates: start: 20200921, end: 20200921
  14. CARBOPLATIN. [Suspect]
     Active Substance: CARBOPLATIN
     Dosage: 90% (ROUTE OF ADMINISTRATION: PORT)
     Route: 042
     Dates: start: 20201102, end: 20201102
  15. XARELTO [Suspect]
     Active Substance: RIVAROXABAN
     Dosage: 20 MG, ONCE A DAY
     Route: 048
     Dates: start: 20210208
  16. LEVOTHYROXINE SODIUM. [Concomitant]
     Active Substance: LEVOTHYROXINE SODIUM
     Dosage: 137 MG DAILY (DOSE INCREASED)
     Dates: start: 2020
  17. PEMBROLIZUMAB. [Suspect]
     Active Substance: PEMBROLIZUMAB
     Indication: SQUAMOUS CELL CARCINOMA OF HEAD AND NECK
     Dosage: 200MG, EVERY 3 WEEKS (ROUTE OF ADMINISTRATION: PORT)
     Route: 042
     Dates: start: 20200803
  18. XARELTO [Suspect]
     Active Substance: RIVAROXABAN
     Dosage: 15 MG, EVERY 12 HOURS
     Route: 048
     Dates: start: 20210117
  19. VITAMIN D (UNSPECIFIED) [Concomitant]
     Active Substance: VITAMIN D NOS
     Dosage: 5000 UNITS, ONCE A DAY

REACTIONS (22)
  - Cough [Unknown]
  - Platelet count decreased [Unknown]
  - Gastrointestinal tube insertion [Unknown]
  - Product dose omission issue [Unknown]
  - Gait disturbance [Unknown]
  - Decreased appetite [Unknown]
  - Asthenia [Unknown]
  - Hypothyroidism [Unknown]
  - Thrombosis [Unknown]
  - Drug ineffective [Unknown]
  - Depressed mood [Unknown]
  - Headache [Unknown]
  - Inappropriate schedule of product administration [Unknown]
  - Adverse event [Unknown]
  - Blood thyroid stimulating hormone increased [Unknown]
  - Malignant neoplasm progression [Unknown]
  - Dehydration [Unknown]
  - Vitamin D decreased [Unknown]
  - Gastrostomy [Unknown]
  - Catheter site pain [Unknown]
  - Anhedonia [Unknown]
  - Peripheral swelling [Unknown]

NARRATIVE: CASE EVENT DATE: 2020
